FAERS Safety Report 6518070-3 (Version None)
Quarter: 2009Q4

REPORT INFORMATION
  Report Type: 
  Country: None (occurrence: None)
  Receive Date: 20091223
  Receipt Date: 20091223
  Transmission Date: 20100525
  Serious: Yes (Hospitalization)
  Sender: FDA-Public Use
  Company Number: None

PATIENT
  Sex: Male
  Weight: 97.8 kg

DRUGS (3)
  1. CARBOPLATIN [Suspect]
     Dosage: 775 MG
  2. ERBITUX [Suspect]
     Dosage: 540 MG
  3. PACLITAXEL [Suspect]
     Dosage: 430 MG

REACTIONS (3)
  - FATIGUE [None]
  - NEUTROPENIA [None]
  - RASH [None]
